FAERS Safety Report 9559771 (Version 1)
Quarter: 2013Q3

REPORT INFORMATION
  Report Type: Spontaneous
  Country: US (occurrence: None)
  Receive Date: 20130906
  Receipt Date: 20130906
  Transmission Date: 20140515
  Serious: Yes (Hospitalization, Other)
  Sender: FDA-Public Use
  Company Number: 163-POMAL-13080567

PATIENT
  Age: 66 Year
  Sex: Female

DRUGS (8)
  1. POMALYST (POMALIDOMIDE) (2 MILLIGRAM, CAPSULES) [Suspect]
     Indication: PLASMA CELL MYELOMA
     Dosage: 1 IN 1 D
     Route: 048
     Dates: start: 201303
  2. ACYCLOVIR (ACICLOVIR) (ACICLOVIR) [Concomitant]
  3. DEXAMETHASONE (DEXAMETHASONE) [Concomitant]
  4. FENTANYL (FENTANYL) [Concomitant]
  5. IBUPROFEN (IBUPROFEN) [Concomitant]
  6. VITAMINS [Concomitant]
  7. OXYBUTIN (OXYBUTYNIN HYDROCHLORIDE) [Concomitant]
  8. VITAMIN B COMPLEX (B-KOMPLEX ^LECIVA^) [Concomitant]

REACTIONS (2)
  - Pneumonia bacterial [None]
  - Gingival bleeding [None]
